FAERS Safety Report 6507597-6 (Version None)
Quarter: 2009Q4

REPORT INFORMATION
  Report Type: 
  Country: None (occurrence: None)
  Receive Date: 20091221
  Receipt Date: 20090416
  Transmission Date: 20100525
  Serious: No
  Sender: FDA-Public Use
  Company Number: US-BRISTOL-MYERS SQUIBB COMPANY-14591812

PATIENT
  Age: 75 Year
  Sex: Female
  Weight: 70 kg

DRUGS (7)
  1. PRAVACHOL [Suspect]
  2. SIMCOR [Suspect]
     Indication: BLOOD CHOLESTEROL INCREASED
     Dosage: 1 DOSAGE FORM = 500MG/20MG
     Route: 048
     Dates: start: 20090302
  3. LANSOPRAZOLE [Concomitant]
  4. LEVOTHYROXINE SODIUM [Concomitant]
  5. TOLTERODINE [Concomitant]
  6. FISH OIL [Concomitant]
  7. LOTREL [Concomitant]

REACTIONS (1)
  - FEELING HOT [None]
